FAERS Safety Report 25191913 (Version 1)
Quarter: 2025Q2

REPORT INFORMATION
  Report Type: Spontaneous
  Country: IR (occurrence: IR)
  Receive Date: 20250414
  Receipt Date: 20250414
  Transmission Date: 20250716
  Serious: Yes (Death)
  Sender: AMGEN
  Company Number: IR-AMGEN-IRNSP2025068596

PATIENT
  Age: 24 Year
  Sex: Male

DRUGS (6)
  1. XGEVA [Suspect]
     Active Substance: DENOSUMAB
     Indication: Langerhans^ cell histiocytosis
     Route: 065
  2. PEGFILGRASTIM [Suspect]
     Active Substance: PEGFILGRASTIM
     Indication: Langerhans^ cell histiocytosis
     Route: 065
  3. VINBLASTINE [Concomitant]
     Active Substance: VINBLASTINE
     Indication: Langerhans^ cell histiocytosis
  4. ETOPOSIDE [Concomitant]
     Active Substance: ETOPOSIDE
     Indication: Langerhans^ cell histiocytosis
  5. MERCAPTOPURINE [Concomitant]
     Active Substance: MERCAPTOPURINE
     Indication: Langerhans^ cell histiocytosis
  6. METHOTREXATE [Concomitant]
     Active Substance: METHOTREXATE
     Indication: Langerhans^ cell histiocytosis

REACTIONS (2)
  - Accidental death [Fatal]
  - Off label use [Unknown]
